FAERS Safety Report 7985493-5 (Version None)
Quarter: 2011Q4

REPORT INFORMATION
  Report Type: 
  Country: None (occurrence: None)
  Receive Date: 20111214
  Receipt Date: 20111129
  Transmission Date: 20120403
  Serious: Yes (Death)
  Sender: FDA-Public Use
  Company Number: B0767603A

PATIENT
  Age: 43 Year
  Sex: Male

DRUGS (4)
  1. NEFAZODONE HCL [Concomitant]
  2. PROPRANOLOL HCL [Concomitant]
  3. LAMOTRIGINE [Suspect]
     Indication: EPILEPSY
     Dosage: 300 MG
  4. CARBAMAZEPINE [Concomitant]

REACTIONS (3)
  - CONDITION AGGRAVATED [None]
  - SUDDEN UNEXPLAINED DEATH IN EPILEPSY [None]
  - CONVULSION [None]
